FAERS Safety Report 8845766 (Version 1)
Quarter: 2012Q4

REPORT INFORMATION
  Report Type: 
  Country: US (occurrence: US)
  Receive Date: 20121017
  Receipt Date: 20121017
  Transmission Date: 20130627
  Serious: Yes (Other)
  Sender: FDA-Public Use
  Company Number: US-BAYER-2012-107021

PATIENT
  Age: 85 Year
  Sex: Male
  Weight: 93 kg

DRUGS (12)
  1. BAYER GENUINE ASPIRIN ORIGINAL STRENGTH [Suspect]
     Indication: BACK PAIN
     Dosage: 2 DF, TID
     Route: 048
     Dates: start: 1947
  2. TERAZOSIN [Concomitant]
  3. LORAZEPAM [Concomitant]
  4. CARVEDILOL [Concomitant]
  5. EFFEXOR [Concomitant]
  6. LISINOPRIL [Concomitant]
  7. FUROSEMIDA [Concomitant]
  8. SPIRONOLACTONE [Concomitant]
  9. PLAVIX [Concomitant]
  10. COLCHICINE [Concomitant]
  11. DIGOXIN [Concomitant]
  12. PRAVASTATIN [Concomitant]

REACTIONS (2)
  - Gastrointestinal ulcer [None]
  - Gastric haemorrhage [None]
